FAERS Safety Report 9239812 (Version 2)
Quarter: 2013Q2

REPORT INFORMATION
  Report Type: Spontaneous
  Country: GB (occurrence: GB)
  Receive Date: 20130418
  Receipt Date: 20130506
  Transmission Date: 20140414
  Serious: Yes (Hospitalization, Other)
  Sender: FDA-Public Use
  Company Number: GB-ROCHE-1215588

PATIENT
  Age: 50 Year
  Sex: Female
  Weight: 63 kg

DRUGS (4)
  1. AVASTIN [Suspect]
     Indication: COLON CANCER METASTATIC
     Route: 042
     Dates: start: 20120903, end: 20130211
  2. AVASTIN [Suspect]
     Route: 042
     Dates: start: 20130304, end: 20130325
  3. TRAMADOL [Concomitant]
     Indication: PAIN
     Dosage: INTERMITTENT
     Route: 048
  4. PARACETAMOL [Concomitant]
     Indication: PAIN
     Dosage: QDS
     Route: 048

REACTIONS (3)
  - Hypertension [Recovering/Resolving]
  - Renal impairment [Recovering/Resolving]
  - Oedema peripheral [Not Recovered/Not Resolved]
